FAERS Safety Report 7476565-2 (Version None)
Quarter: 2011Q2

REPORT INFORMATION
  Report Type: 
  Country: None (occurrence: None)
  Receive Date: 20110512
  Receipt Date: 20110428
  Transmission Date: 20111010
  Serious: Yes (Hospitalization)
  Sender: FDA-Public Use
  Company Number: DK-JNJFOC-20110302711

PATIENT
  Age: 60 Year
  Sex: Male
  Weight: 90 kg

DRUGS (9)
  1. UNIKALK SENIOR [Concomitant]
  2. ENBREL [Suspect]
     Indication: SERONEGATIVE ARTHRITIS
  3. IBUPROFEN [Concomitant]
     Route: 048
  4. FOLIMET [Concomitant]
     Route: 048
  5. ALENDRONATE SODIUM [Concomitant]
     Route: 048
  6. REMICADE [Suspect]
     Indication: SERONEGATIVE ARTHRITIS
     Route: 042
  7. ACETAMINOPHEN [Concomitant]
     Route: 048
  8. METOJECT [Concomitant]
  9. SIMVASTATIN [Concomitant]
     Route: 048

REACTIONS (1)
  - LANGERHANS' CELL HISTIOCYTOSIS [None]
